FAERS Safety Report 8763628 (Version 1)
Quarter: 2012Q4

REPORT INFORMATION
  Report Type: 
  Country: US (occurrence: US)
  Receive Date: 20120831
  Receipt Date: 20120831
  Transmission Date: 20130627
  Serious: Yes (Other)
  Sender: FDA-Public Use
  Company Number: US-PAR PHARMACEUTICAL, INC-2012SCPR004580

PATIENT

DRUGS (2)
  1. DEXAMETHASONE [Suspect]
     Indication: CATARACT
     Dosage: 6 times / day, bilaterally
     Route: 031
  2. DEXAMETHASONE [Suspect]
     Dosage: once/ day
     Route: 031

REACTIONS (1)
  - Cushing^s syndrome [Recovering/Resolving]
